FAERS Safety Report 5662380-9 (Version None)
Quarter: 2008Q1

REPORT INFORMATION
  Report Type: 
  Country: None (occurrence: None)
  Receive Date: 20080310
  Receipt Date: 20080226
  Transmission Date: 20080703
  Serious: Yes (Death, Hospitalization)
  Sender: FDA-Public Use
  Company Number: CLOF-1000086

PATIENT
  Age: 76 Year
  Sex: Male
  Weight: 88.4 kg

DRUGS (32)
  1. CLOFARABINE (CLOFARABINE) CAPSULE [Suspect]
     Indication: MYELODYSPLASTIC SYNDROME
     Dosage: 55 MG, QDX5, ORAL
     Route: 048
     Dates: start: 20080128, end: 20080201
  2. LEVAQUIN [Concomitant]
  3. LISINOPRIL (HYDROCHLOROTHIAZIDE, LISINOPRIL DIHYDRATE) [Concomitant]
  4. METFORMIN HCL [Concomitant]
  5. PRANDIN (DEFLAZACORT) [Concomitant]
  6. GLYBURIDE [Concomitant]
  7. DIFLUCAN [Concomitant]
  8. ESOMEPRAZOLE (ESOMEPRAZOLE) [Concomitant]
  9. NOVOLOG [Concomitant]
  10. DEXTROSE [Concomitant]
  11. TAMSULOSIN HCL [Concomitant]
  12. MAGNESIUM SULFATE [Concomitant]
  13. METOPROLOL TARTRATE [Concomitant]
  14. MORPHINE [Concomitant]
  15. ONDANSETRON HCL [Concomitant]
  16. POTASSIUM CHLORIDE [Concomitant]
  17. SPIRONOLACTONE [Concomitant]
  18. FLUCONAZOLE [Concomitant]
  19. FUROSEMIDE [Concomitant]
  20. GLUCOSE (GLUCOSE) [Concomitant]
  21. HYDRALAZINE HCL (HYDRALAZINE HYDROCHLORIDE) [Concomitant]
  22. LABETALOL HCL (LABETALOL HYDROCHLORIDE) [Concomitant]
  23. LORAZEPAM [Concomitant]
  24. ALBUMIN (HUMAN) [Concomitant]
  25. AMLODIPINE [Concomitant]
  26. DIPHENHYDRAMINE HCL [Concomitant]
  27. NEUPOGEN [Concomitant]
  28. LANTUS [Concomitant]
  29. SENNA [Concomitant]
  30. DOCUSATE SODIUM (DOCUSATE SODIUM) [Concomitant]
  31. AMPICILINA SULBACTAM (AMPICILLIN SODIUM, SUBLACTAM SODIUM) [Concomitant]
  32. PRAMOXIN/HYDROCORTISONE [Concomitant]

REACTIONS (11)
  - ANAEMIA [None]
  - ASTHENIA [None]
  - BLADDER DISTENSION [None]
  - DIARRHOEA [None]
  - FATIGUE [None]
  - HYPOGLYCAEMIA [None]
  - LYMPHADENOPATHY [None]
  - NEUTROPENIA [None]
  - PETECHIAE [None]
  - RASH ERYTHEMATOUS [None]
  - RENAL FAILURE [None]
